FAERS Safety Report 10068047 (Version 1)
Quarter: 2014Q2

REPORT INFORMATION
  Report Type: Report from Study
  Country: BR (occurrence: BR)
  Receive Date: 20140409
  Receipt Date: 20140409
  Transmission Date: 20141212
  Serious: Yes (Death, Hospitalization, Other)
  Sender: FDA-Public Use
  Company Number: PHHY2014BR042037

PATIENT
  Sex: Female
  Weight: 97 kg

DRUGS (9)
  1. DIOVAN HCT [Suspect]
     Indication: HYPERTENSION
     Dosage: 1 DF, DAILY (320 MG VALS AND 25 MG HCTZ)
     Route: 048
     Dates: start: 201306
  2. PRESSAT [Suspect]
     Indication: HYPERTENSION
     Dosage: 1 DF(5 MG), DAILY
     Route: 048
     Dates: start: 201306
  3. SIFROL [Concomitant]
     Indication: PARKINSON^S DISEASE
  4. MANTIDAN [Concomitant]
     Indication: PARKINSON^S DISEASE
  5. LEVODOPA [Concomitant]
     Indication: PARKINSON^S DISEASE
  6. CITALOPRAM [Concomitant]
     Indication: DEPRESSION
  7. RIVOTRIL [Concomitant]
     Indication: ANXIETY
  8. PURAN T4 [Concomitant]
     Indication: HYPOTHYROIDISM
     Dosage: UNK UKN, UNK
     Dates: start: 2003
  9. CORTICOSTEROIDS [Concomitant]

REACTIONS (10)
  - Infarction [Fatal]
  - Cerebrovascular accident [Fatal]
  - Injection related reaction [Unknown]
  - Pneumonia [Unknown]
  - Myelopathy [Unknown]
  - Pain in extremity [Unknown]
  - Balance disorder [Unknown]
  - Oedema peripheral [Unknown]
  - Dizziness [Unknown]
  - Vertigo [Unknown]
